FAERS Safety Report 21298710 (Version 1)
Quarter: 2022Q3

REPORT INFORMATION
  Report Type: Spontaneous
  Country: GB (occurrence: GB)
  Receive Date: 20220906
  Receipt Date: 20220906
  Transmission Date: 20221027
  Serious: No
  Sender: FDA-Public Use
  Company Number: GB-ELI_LILLY_AND_COMPANY-GB202209000435

PATIENT
  Age: 75 Year
  Sex: Male

DRUGS (1)
  1. CIALIS [Suspect]
     Active Substance: TADALAFIL
     Indication: Prostatomegaly
     Dosage: 5 MG, UNKNOWN
     Route: 065
     Dates: start: 2017

REACTIONS (3)
  - Visual impairment [Unknown]
  - Balance disorder [Unknown]
  - Ear disorder [Unknown]
